FAERS Safety Report 9207913 (Version 1)
Quarter: 2013Q1

REPORT INFORMATION
  Report Type: Spontaneous
  Country: US (occurrence: None)
  Receive Date: 20120720
  Receipt Date: 20120720
  Transmission Date: 20140127
  Serious: Yes (Other)
  Sender: FDA-Public Use
  Company Number: 2011P1009108

PATIENT
  Sex: Male

DRUGS (1)
  1. AMOXICILLIN [Suspect]
     Route: 048
     Dates: start: 20110901, end: 20110914

REACTIONS (2)
  - Abnormal behaviour [None]
  - Head banging [None]
